FAERS Safety Report 5553406-1 (Version None)
Quarter: 2007Q4

REPORT INFORMATION
  Report Type: 
  Country: None (occurrence: None)
  Receive Date: 20071213
  Receipt Date: 20071207
  Transmission Date: 20080405
  Serious: Yes (Other)
  Sender: FDA-Public Use
  Company Number: JP-BRISTOL-MYERS SQUIBB COMPANY-14012132

PATIENT
  Age: 76 Year
  Sex: Female

DRUGS (4)
  1. MEVALOTIN [Suspect]
     Indication: HYPERLIPIDAEMIA
     Route: 048
     Dates: start: 20061010, end: 20071202
  2. DIOVAN [Concomitant]
     Route: 065
  3. NORVASC [Concomitant]
     Route: 065
  4. ALMARL [Concomitant]
     Route: 065

REACTIONS (3)
  - CHROMATURIA [None]
  - MUSCULOSKELETAL PAIN [None]
  - OEDEMA PERIPHERAL [None]
